FAERS Safety Report 5841783-3 (Version None)
Quarter: 2008Q3

REPORT INFORMATION
  Report Type: 
  Country: None (occurrence: None)
  Receive Date: 20080811
  Receipt Date: 20080811
  Transmission Date: 20090109
  Serious: Yes (Other)
  Sender: FDA-Public Use
  Company Number: None

PATIENT
  Age: 44 Year
  Sex: Male
  Weight: 72.5755 kg

DRUGS (1)
  1. CHANTIX [Suspect]
     Indication: SMOKING CESSATION THERAPY
     Dosage: 1 PILL   2  PO
     Route: 048
     Dates: start: 20080331, end: 20080510

REACTIONS (10)
  - ANOREXIA [None]
  - ANXIETY [None]
  - FATIGUE [None]
  - GENERAL PHYSICAL HEALTH DETERIORATION [None]
  - INSOMNIA [None]
  - LOSS OF EMPLOYMENT [None]
  - NAUSEA [None]
  - NERVOUS SYSTEM DISORDER [None]
  - NEURALGIA [None]
  - WEIGHT DECREASED [None]
